FAERS Safety Report 19681545 (Version 2)
Quarter: 2021Q3

REPORT INFORMATION
  Report Type: Report from Study
  Country: CN (occurrence: CN)
  Receive Date: 20210810
  Receipt Date: 20210816
  Transmission Date: 20211014
  Serious: Yes (Hospitalization)
  Sender: FDA-Public Use
  Company Number: CN-G1-000323

PATIENT
  Age: 64 Year
  Sex: Female
  Weight: 52.8 kg

DRUGS (4)
  1. 1766825 (GLOBALC3SEP20): TROPISETRON HYDROCHLORIDE [Concomitant]
     Route: 041
     Dates: start: 20210715, end: 20210719
  2. TRILACICLIB [Suspect]
     Active Substance: TRILACICLIB
     Indication: MYELOSUPPRESSION
     Dosage: 367.20 MG, QD
     Route: 041
     Dates: start: 20210715, end: 20210719
  3. 1734920 (GLOBALC3SEP20): DEXAMETHASONE SODIUM PHOSPHATE EIPICO [Concomitant]
     Route: 041
     Dates: start: 20210715, end: 20210719
  4. 45162 (GLOBALC3SEP20): TOPOTECAN HYDROCHLORIDE FOR INJECTION [Suspect]
     Active Substance: TOPOTECAN HYDROCHLORIDE
     Indication: SMALL CELL LUNG CANCER EXTENSIVE STAGE
     Dosage: 1.91 MG, QD
     Route: 041
     Dates: start: 20210715, end: 20210719

REACTIONS (1)
  - Neutrophil count decreased [Recovered/Resolved]

NARRATIVE: CASE EVENT DATE: 20210722
